FAERS Safety Report 6601425-6 (Version None)
Quarter: 2010Q1

REPORT INFORMATION
  Report Type: 
  Country: None (occurrence: None)
  Receive Date: 20100225
  Receipt Date: 20100125
  Transmission Date: 20100710
  Serious: No
  Sender: FDA-Public Use
  Company Number: US-BAYER-201011145BCC

PATIENT
  Age: 72 Year
  Sex: Female

DRUGS (1)
  1. ALEVE (CAPLET) [Suspect]
     Indication: PAIN
     Route: 065

REACTIONS (5)
  - CHEILITIS [None]
  - HYPERSENSITIVITY [None]
  - PRURITUS [None]
  - RASH PRURITIC [None]
  - URTICARIA [None]
